FAERS Safety Report 20420726 (Version 1)
Quarter: 2022Q1

REPORT INFORMATION
  Report Type: Spontaneous
  Country: US (occurrence: None)
  Receive Date: 20220202
  Receipt Date: 20220202
  Transmission Date: 20220423
  Serious: No
  Sender: FDA-Public Use
  Company Number: None

PATIENT
  Age: 73 Year
  Sex: Female
  Weight: 49.95 kg

DRUGS (1)
  1. BENZONATATE [Suspect]
     Active Substance: BENZONATATE
     Indication: Antitussive therapy
     Dosage: OTHER QUANTITY : 1 CAPSULE(S);?FREQUENCY : EVERY 8 HOURS;?
     Route: 048
     Dates: start: 20220110, end: 20220114

REACTIONS (7)
  - Cough [None]
  - Dizziness [None]
  - Somnolence [None]
  - Feeling abnormal [None]
  - Confusional state [None]
  - Headache [None]
  - Therapy non-responder [None]

NARRATIVE: CASE EVENT DATE: 20220110
